FAERS Safety Report 16235154 (Version 3)
Quarter: 2021Q1

REPORT INFORMATION
  Report Type: Spontaneous
  Country: US (occurrence: US)
  Receive Date: 20190424
  Receipt Date: 20210210
  Transmission Date: 20210419
  Serious: Yes (Death, Other)
  Sender: FDA-Public Use
  Company Number: US-ASTRAZENECA-2019SE58428

PATIENT
  Age: 20372 Day
  Sex: Female
  Weight: 52.2 kg

DRUGS (86)
  1. PROTONIX [Suspect]
     Active Substance: PANTOPRAZOLE SODIUM
     Indication: GASTROOESOPHAGEAL REFLUX DISEASE
     Route: 065
     Dates: start: 199901, end: 200312
  2. PROTONIX [Suspect]
     Active Substance: PANTOPRAZOLE SODIUM
     Indication: GASTROOESOPHAGEAL REFLUX DISEASE
     Route: 065
     Dates: start: 200002, end: 20151020
  3. COUMADIN [Concomitant]
     Active Substance: WARFARIN SODIUM
     Indication: THROMBOSIS
     Dates: start: 201510, end: 201602
  4. ZITHROMAX [Concomitant]
     Active Substance: AZITHROMYCIN DIHYDRATE
     Indication: INFLUENZA
     Dates: start: 200003
  5. HYDROCODONE BITARTRATE AND ACETAMINOPHEN [Concomitant]
     Active Substance: ACETAMINOPHEN\HYDROCODONE BITARTRATE
  6. VENTOLIN HFA [Concomitant]
     Active Substance: ALBUTEROL SULFATE
  7. KETOCONAZOLE. [Concomitant]
     Active Substance: KETOCONAZOLE
  8. SYSTANE (HYPROMELLOSE 2910 (4000 MPA.S)) [Concomitant]
     Active Substance: HYPROMELLOSE 2910 (4000 MPA.S)
  9. SENNOSIDES. [Concomitant]
     Active Substance: SENNOSIDES
  10. PYRIDIUM [Concomitant]
     Active Substance: PHENAZOPYRIDINE
  11. PRILOSEC [Suspect]
     Active Substance: OMEPRAZOLE MAGNESIUM
     Indication: GASTROOESOPHAGEAL REFLUX DISEASE
     Route: 048
     Dates: start: 199901, end: 200312
  12. ZYMAR [Concomitant]
     Active Substance: GATIFLOXACIN
  13. NITROFURANTOIN. [Concomitant]
     Active Substance: NITROFURANTOIN
  14. MUPIROCIN. [Concomitant]
     Active Substance: MUPIROCIN
  15. SYMBICORT [Concomitant]
     Active Substance: BUDESONIDE\FORMOTEROL FUMARATE DIHYDRATE
  16. VITAMIN D3 [Concomitant]
     Active Substance: CHOLECALCIFEROL
  17. AQUAPHOR [Concomitant]
     Active Substance: PETROLATUM
  18. ONDANSETRON HYDROCHLORIDE. [Concomitant]
     Active Substance: ONDANSETRON HYDROCHLORIDE
  19. MULTIVITAMIN [Concomitant]
     Active Substance: VITAMINS
     Indication: SUPPLEMENTATION THERAPY
     Dates: start: 1998, end: 2018
  20. ZANTAC [Concomitant]
     Active Substance: RANITIDINE HYDROCHLORIDE
     Dates: start: 200302
  21. TUSSIONEX PENNKINETIC [Concomitant]
     Active Substance: CHLORPHENIRAMINE\HYDROCODONE
  22. METOPROLOL. [Concomitant]
     Active Substance: METOPROLOL
  23. AMLODIPINE BESYLATE. [Concomitant]
     Active Substance: AMLODIPINE BESYLATE
  24. CLINDAMYCIN. [Concomitant]
     Active Substance: CLINDAMYCIN
  25. SULFAMETHOXAZOLE [Concomitant]
     Active Substance: SULFAMETHOXAZOLE
  26. CRANBERRY. [Concomitant]
     Active Substance: CRANBERRY
  27. IRON [Concomitant]
     Active Substance: IRON
  28. CHLORHEXIDINE [Concomitant]
     Active Substance: CHLORHEXIDINE
  29. NEXIUM [Suspect]
     Active Substance: ESOMEPRAZOLE MAGNESIUM
     Indication: GASTROOESOPHAGEAL REFLUX DISEASE
     Route: 048
     Dates: start: 2009, end: 2013
  30. PROTONIX [Suspect]
     Active Substance: PANTOPRAZOLE SODIUM
     Indication: GASTROOESOPHAGEAL REFLUX DISEASE
     Dosage: GENERIC
     Route: 065
     Dates: start: 20110311, end: 20150903
  31. ULTRAM [Concomitant]
     Active Substance: TRAMADOL HYDROCHLORIDE
     Indication: ANALGESIC THERAPY
     Dates: start: 201311, end: 201606
  32. ZITHROMAX [Concomitant]
     Active Substance: AZITHROMYCIN DIHYDRATE
     Indication: NASOPHARYNGITIS
     Dates: start: 200003
  33. VANCOMYCIN [Concomitant]
     Active Substance: VANCOMYCIN
     Indication: PNEUMONIA
     Dates: start: 201510
  34. LIPITOR [Concomitant]
     Active Substance: ATORVASTATIN CALCIUM
     Indication: BLOOD CHOLESTEROL ABNORMAL
     Dates: start: 2002, end: 2005
  35. NIZATIDINE. [Concomitant]
     Active Substance: NIZATIDINE
  36. TUMS [Concomitant]
     Active Substance: CALCIUM CARBONATE
     Dosage: 2?4 TABLETS AS NEEDED
     Dates: start: 2008, end: 2018
  37. GUAIFENESIN? DEXTROMETHORPHAN [Concomitant]
  38. PRILOSEC OTC [Suspect]
     Active Substance: OMEPRAZOLE MAGNESIUM
     Indication: GASTROOESOPHAGEAL REFLUX DISEASE
     Route: 048
     Dates: start: 199901, end: 200312
  39. LISINOPRIL. [Concomitant]
     Active Substance: LISINOPRIL
     Indication: BLOOD PRESSURE ABNORMAL
     Dates: start: 199802, end: 200607
  40. BENZONATATE. [Concomitant]
     Active Substance: BENZONATATE
     Indication: PNEUMONIA
     Dates: start: 201009, end: 201501
  41. DOXYCYCLINE HYCLATE. [Concomitant]
     Active Substance: DOXYCYCLINE HYCLATE
     Indication: INFECTION
     Dates: start: 201212
  42. HUMULIN NOS [Concomitant]
     Active Substance: INSULIN HUMAN
  43. CEPHALEXIN. [Concomitant]
     Active Substance: CEPHALEXIN
  44. OXYCODONE AND ACETAMINOPHEN [Concomitant]
     Active Substance: ACETAMINOPHEN\OXYCODONE HYDROCHLORIDE
  45. WARFARIN [Concomitant]
     Active Substance: WARFARIN
  46. CIPROFLOXACIN. [Concomitant]
     Active Substance: CIPROFLOXACIN
  47. TRIMETHOPRIM. [Concomitant]
     Active Substance: TRIMETHOPRIM
  48. CEFPODOXIME [Concomitant]
     Active Substance: CEFPODOXIME
  49. VITAMIN E [Concomitant]
     Active Substance: .ALPHA.-TOCOPHEROL
  50. SALINE [Concomitant]
     Active Substance: SODIUM CHLORIDE
  51. HYDRALAZINE HYDROCHLORIDE. [Concomitant]
     Active Substance: HYDRALAZINE HYDROCHLORIDE
  52. METHENAMINE [Concomitant]
     Active Substance: METHENAMINE
  53. HIPREX [Concomitant]
     Active Substance: METHENAMINE HIPPURATE
  54. NEXIUM [Suspect]
     Active Substance: ESOMEPRAZOLE MAGNESIUM
     Indication: GASTROOESOPHAGEAL REFLUX DISEASE
     Route: 048
     Dates: start: 199901, end: 200312
  55. PRILOSEC OTC [Suspect]
     Active Substance: OMEPRAZOLE MAGNESIUM
     Indication: GASTROOESOPHAGEAL REFLUX DISEASE
     Dosage: AS NEEDED
     Route: 048
     Dates: start: 2003, end: 2005
  56. PRAVACHOL [Concomitant]
     Active Substance: PRAVASTATIN SODIUM
     Indication: BLOOD CHOLESTEROL ABNORMAL
     Dates: start: 201504, end: 201602
  57. LANTUS [Concomitant]
     Active Substance: INSULIN GLARGINE
     Indication: DIABETES MELLITUS
     Dates: start: 2009, end: 2017
  58. LEVOTHYROXIN [Concomitant]
     Active Substance: LEVOTHYROXINE
  59. PRAVASTATIN. [Concomitant]
     Active Substance: PRAVASTATIN
  60. SODIUM BICARBONATE. [Concomitant]
     Active Substance: SODIUM BICARBONATE
  61. AVANDIA [Concomitant]
     Active Substance: ROSIGLITAZONE MALEATE
  62. BUTAL/ACETAMINOPHEN [Concomitant]
  63. PHENAZOPYRID [Concomitant]
  64. COLACE [Concomitant]
     Active Substance: DOCUSATE SODIUM
  65. POLYETHYLENE GLYCOL [Concomitant]
     Active Substance: POLYETHYLENE GLYCOLS
  66. ZOSYN [Concomitant]
     Active Substance: PIPERACILLIN SODIUM\TAZOBACTAM SODIUM
  67. ZETIA [Concomitant]
     Active Substance: EZETIMIBE
  68. NEXIUM 24HR [Suspect]
     Active Substance: ESOMEPRAZOLE MAGNESIUM
     Indication: GASTROOESOPHAGEAL REFLUX DISEASE
     Route: 048
     Dates: start: 2014, end: 2018
  69. NORVASC [Concomitant]
     Active Substance: AMLODIPINE BESYLATE
     Indication: BLOOD PRESSURE ABNORMAL
     Dates: start: 200007, end: 201702
  70. ROCEPHIN [Concomitant]
     Active Substance: CEFTRIAXONE SODIUM
     Indication: INFECTION
     Dates: start: 200411
  71. BENADRYL [Concomitant]
     Active Substance: DIPHENHYDRAMINE HYDROCHLORIDE
     Indication: HYPERSENSITIVITY
     Dates: start: 1998, end: 2018
  72. ERYTHROMYCIN. [Concomitant]
     Active Substance: ERYTHROMYCIN
  73. GABAPENTIN. [Concomitant]
     Active Substance: GABAPENTIN
  74. CHERATUSSIN [Concomitant]
     Active Substance: AMMONIUM CHLORIDE\DEXTROMETHORPHAN\SODIUM CITRATE
  75. PREDNISONE. [Concomitant]
     Active Substance: PREDNISONE
  76. CYANOCOBALAMIN. [Concomitant]
     Active Substance: CYANOCOBALAMIN
  77. SYNTHROID [Concomitant]
     Active Substance: LEVOTHYROXINE SODIUM
  78. PRILOSEC [Suspect]
     Active Substance: OMEPRAZOLE MAGNESIUM
     Indication: GASTROOESOPHAGEAL REFLUX DISEASE
     Route: 048
     Dates: start: 199901, end: 200312
  79. FUROSEMIDE. [Concomitant]
     Active Substance: FUROSEMIDE
     Indication: BLOOD PRESSURE ABNORMAL
     Dates: start: 200003, end: 201203
  80. CARVEDILOL. [Concomitant]
     Active Substance: CARVEDILOL
     Indication: BLOOD PRESSURE ABNORMAL
     Dates: start: 201404, end: 201702
  81. METOPROLOL TARTRATE. [Concomitant]
     Active Substance: METOPROLOL TARTRATE
     Indication: BLOOD PRESSURE ABNORMAL
     Dates: start: 201202, end: 201406
  82. TYLENOL [Concomitant]
     Active Substance: ACETAMINOPHEN
     Indication: ANALGESIC THERAPY
     Dates: start: 1998, end: 2018
  83. LABETALOL [Concomitant]
     Active Substance: LABETALOL\LABETALOL HYDROCHLORIDE
  84. CLOBETASOL [Concomitant]
     Active Substance: CLOBETASOL
  85. CALCIUM [Concomitant]
     Active Substance: CALCIUM
  86. PENICILLIN [Concomitant]
     Active Substance: PENICILLIN

REACTIONS (5)
  - Nephrogenic anaemia [Unknown]
  - Chronic kidney disease [Unknown]
  - Acute kidney injury [Unknown]
  - End stage renal disease [Unknown]
  - Renal failure [Unknown]

NARRATIVE: CASE EVENT DATE: 20000424
